FAERS Safety Report 16781966 (Version 2)
Quarter: 2019Q3

REPORT INFORMATION
  Report Type: Spontaneous
  Country: IT (occurrence: IT)
  Receive Date: 20190906
  Receipt Date: 20190925
  Transmission Date: 20191005
  Serious: Yes (Other)
  Sender: FDA-Public Use
  Company Number: IT-ALLERGAN-1936180US

PATIENT
  Sex: Female

DRUGS (1)
  1. OZURDEX [Suspect]
     Active Substance: DEXAMETHASONE
     Indication: PRODUCT USED FOR UNKNOWN INDICATION
     Dosage: 0.7 MG, SINGLE
     Route: 031
     Dates: start: 20180219, end: 20180219

REACTIONS (6)
  - Device failure [Unknown]
  - Adverse event [Unknown]
  - Impaired quality of life [Unknown]
  - Eye injury [Unknown]
  - Foreign body in eye [Unknown]
  - Device defective [Unknown]
